FAERS Safety Report 9444643 (Version 1)
Quarter: 2013Q3

REPORT INFORMATION
  Report Type: Spontaneous
  Country: US (occurrence: None)
  Receive Date: 20130806
  Receipt Date: 20130806
  Transmission Date: 20140515
  Serious: Yes (Hospitalization)
  Sender: FDA-Public Use
  Company Number: None

PATIENT
  Age: 69 Year
  Sex: Female
  Weight: 100.9 kg

DRUGS (2)
  1. RIVAROXABAN 10 MG JANSSEN [Suspect]
     Indication: THROMBOSIS PROPHYLAXIS
     Route: 048
     Dates: start: 20130711, end: 20130714
  2. CITALOPRAM 40 MG [Suspect]
     Route: 048
     Dates: end: 20130714

REACTIONS (2)
  - Haematochezia [None]
  - Haemoglobin decreased [None]
